FAERS Safety Report 13517924 (Version 2)
Quarter: 2017Q2

REPORT INFORMATION
  Report Type: Spontaneous
  Country: US (occurrence: US)
  Receive Date: 20170505
  Receipt Date: 20170511
  Transmission Date: 20170830
  Serious: No
  Sender: FDA-Public Use
  Company Number: US-HORIZON-PRO-0015-2017

PATIENT
  Sex: Female

DRUGS (7)
  1. CALCITRIOL. [Concomitant]
     Active Substance: CALCITRIOL
  2. PROCYSBI DELAYED-RELEASE [Suspect]
     Active Substance: CYSTEAMINE BITARTRATE
     Indication: CYSTINOSIS
     Dosage: 12 PILLS BID
     Route: 048
  3. MAGNESIUM [Concomitant]
     Active Substance: MAGNESIUM
  4. SODIUM CHLORIDE. [Concomitant]
     Active Substance: SODIUM CHLORIDE
  5. IRON SULFATE [Concomitant]
     Active Substance: FERROUS SULFATE ANHYDROUS
  6. CYTRA-K [Concomitant]
     Active Substance: CITRIC ACID MONOHYDRATE\POTASSIUM CITRATE
  7. POTASSIUM [Concomitant]
     Active Substance: POTASSIUM

REACTIONS (2)
  - Amino acid level [Unknown]
  - Drug ineffective [Unknown]
